FAERS Safety Report 21600151 (Version 2)
Quarter: 2022Q4

REPORT INFORMATION
  Report Type: Report from Study
  Country: US (occurrence: US)
  Receive Date: 20221116
  Receipt Date: 20221118
  Transmission Date: 20230113
  Serious: No
  Sender: FDA-Public Use
  Company Number: US-ABBVIE-4171422

PATIENT
  Sex: Female
  Weight: 56.699 kg

DRUGS (15)
  1. SKYRIZI [Suspect]
     Active Substance: RISANKIZUMAB-RZAA
     Indication: Psoriasis
     Dosage: WEEK 0
     Route: 058
     Dates: start: 20220921
  2. SKYRIZI [Suspect]
     Active Substance: RISANKIZUMAB-RZAA
     Dosage: WEEK 4
     Route: 058
  3. LORAZEPAM 1 MG TABLET [Concomitant]
     Indication: Product used for unknown indication
     Route: 048
  4. LORAZEPAM 1 MG TABLET [Concomitant]
     Indication: Product used for unknown indication
     Route: 048
  5. CLOBETASOL PROPIONATE [Concomitant]
     Active Substance: CLOBETASOL PROPIONATE
     Indication: Product used for unknown indication
  6. FLUOXETINEE HCL. 10 MG CAPSULE [Concomitant]
     Indication: Product used for unknown indication
     Route: 048
  7. FLUOXETINEE HCL. 10 MG CAPSULE [Concomitant]
     Indication: Product used for unknown indication
     Route: 048
  8. PROTONIX 40 MG TABLET DR [Concomitant]
     Indication: Product used for unknown indication
     Route: 048
  9. PROTONIX 40 MG TABLET DR [Concomitant]
     Indication: Product used for unknown indication
     Route: 048
  10. PRAVASTATIN SODIUM 20 MG TABLET [Concomitant]
     Indication: Product used for unknown indication
     Route: 048
  11. PRAVASTATIN SODIUM 20 MG TABLET [Concomitant]
     Indication: Product used for unknown indication
     Route: 048
  12. GABAPENTIN [Concomitant]
     Active Substance: GABAPENTIN
     Indication: Product used for unknown indication
     Route: 048
  13. GABAPENTIN [Concomitant]
     Active Substance: GABAPENTIN
     Indication: Product used for unknown indication
     Route: 048
  14. PREDNISONE [Concomitant]
     Active Substance: PREDNISONE
     Indication: Product used for unknown indication
  15. ZYRTEC [Concomitant]
     Active Substance: CETIRIZINE HYDROCHLORIDE
     Indication: Product used for unknown indication

REACTIONS (2)
  - Rash [Not Recovered/Not Resolved]
  - Urticaria [Not Recovered/Not Resolved]

NARRATIVE: CASE EVENT DATE: 20220101
